FAERS Safety Report 21097232 (Version 1)
Quarter: 2022Q3

REPORT INFORMATION
  Report Type: Spontaneous
  Country: US (occurrence: US)
  Receive Date: 20220719
  Receipt Date: 20220719
  Transmission Date: 20221026
  Serious: No
  Sender: FDA-Public Use
  Company Number: US-CIPLA LTD.-2022US00411

PATIENT
  Sex: Male

DRUGS (2)
  1. TESTOSTERONE [Suspect]
     Active Substance: TESTOSTERONE
     Indication: Product used for unknown indication
     Dosage: 100 MG (FIRST DOSE)
     Route: 065
     Dates: start: 20220116
  2. TESTOSTERONE [Suspect]
     Active Substance: TESTOSTERONE
     Dosage: UNK, 2ND DOSE (100 MG), 3 DAYS LATER
     Route: 065
     Dates: start: 20220119

REACTIONS (7)
  - Migraine [Not Recovered/Not Resolved]
  - Condition aggravated [Not Recovered/Not Resolved]
  - Multiple use of single-use product [Unknown]
  - Fatigue [Not Recovered/Not Resolved]
  - Irritability [Not Recovered/Not Resolved]
  - Headache [Not Recovered/Not Resolved]
  - Asthenia [Not Recovered/Not Resolved]

NARRATIVE: CASE EVENT DATE: 20220101
